FAERS Safety Report 5968979-4 (Version None)
Quarter: 2008Q4

REPORT INFORMATION
  Report Type: 
  Country: None (occurrence: None)
  Receive Date: 20081126
  Receipt Date: 20081117
  Transmission Date: 20090506
  Serious: Yes (Hospitalization)
  Sender: FDA-Public Use
  Company Number: ES-AMGEN-UK315204

PATIENT
  Sex: Female
  Weight: 70 kg

DRUGS (4)
  1. NEULASTA [Suspect]
     Indication: CHEMOTHERAPY
     Route: 058
     Dates: start: 20081014
  2. CYCLOPHOSPHAMIDE [Concomitant]
     Route: 042
  3. EPIRUBICIN HYDROCHLORIDE [Concomitant]
     Route: 042
  4. FLUOROURACIL [Concomitant]
     Route: 042

REACTIONS (2)
  - DRUG INEFFECTIVE [None]
  - NEUTROPENIA [None]
